FAERS Safety Report 19221975 (Version 2)
Quarter: 2021Q2

REPORT INFORMATION
  Report Type: Report from Study
  Country: None (occurrence: US)
  Receive Date: 20210506
  Receipt Date: 20210510
  Transmission Date: 20210717
  Serious: Yes (Hospitalization, Other)
  Sender: FDA-Public Use
  Company Number: US-ABBVIE-21K-163-3892510-00

PATIENT
  Age: 56 Year
  Sex: Female
  Weight: 54.03 kg

DRUGS (3)
  1. HUMIRA [Suspect]
     Active Substance: ADALIMUMAB
     Indication: IMMUNE-MEDIATED MYOSITIS
     Route: 058
     Dates: start: 201103, end: 2014
  2. PREDNISONE. [Concomitant]
     Active Substance: PREDNISONE
     Indication: MUSCLE NECROSIS
  3. HUMIRA [Suspect]
     Active Substance: ADALIMUMAB
     Route: 058
     Dates: start: 2014, end: 201501

REACTIONS (7)
  - Cardiac disorder [Unknown]
  - Cardiac output decreased [Unknown]
  - Blood creatine phosphokinase increased [Recovering/Resolving]
  - Off label use [Not Recovered/Not Resolved]
  - Bradycardia [Recovered/Resolved]
  - Therapeutic response unexpected [Recovering/Resolving]
  - Myopathy [Unknown]

NARRATIVE: CASE EVENT DATE: 201103
